FAERS Safety Report 12173780 (Version 4)
Quarter: 2016Q2

REPORT INFORMATION
  Report Type: Report from Study
  Country: US (occurrence: US)
  Receive Date: 20160314
  Receipt Date: 20160617
  Transmission Date: 20160815
  Serious: Yes (Hospitalization, Other)
  Sender: FDA-Public Use
  Company Number: US-AMGEN-USASL2016029140

PATIENT
  Age: 38 Year
  Sex: Female

DRUGS (1)
  1. ENBREL [Suspect]
     Active Substance: ETANERCEPT
     Indication: RHEUMATOID ARTHRITIS
     Dosage: 50 MG, UNK
     Route: 065
     Dates: start: 20160225

REACTIONS (12)
  - Sinusitis [Recovering/Resolving]
  - Nodule [Unknown]
  - Haemoptysis [Unknown]
  - Injection site reaction [Unknown]
  - Arthritis [Unknown]
  - Rash [Unknown]
  - Incorrect route of drug administration [Unknown]
  - Infection susceptibility increased [Unknown]
  - Gastrointestinal viral infection [Recovering/Resolving]
  - Malaise [Unknown]
  - Wrong technique in product usage process [Unknown]
  - Gastrointestinal disorder [Recovering/Resolving]

NARRATIVE: CASE EVENT DATE: 2016
